FAERS Safety Report 4737964-2 (Version None)
Quarter: 2005Q3

REPORT INFORMATION
  Report Type: 
  Country: None (occurrence: None)
  Receive Date: 20050809
  Receipt Date: 20050616
  Transmission Date: 20060218
  Serious: Yes (Hospitalization)
  Sender: FDA-Public Use
  Company Number: FR-BRISTOL-MYERS SQUIBB COMPANY-13012117

PATIENT
  Age: 32 Year
  Sex: Male

DRUGS (3)
  1. VASTEN TABS 20 MG [Suspect]
     Indication: HYPERCHOLESTEROLAEMIA
     Route: 048
     Dates: start: 20030319, end: 20050530
  2. LITHIUM [Concomitant]
     Route: 048
  3. LAMISIL [Concomitant]
     Indication: ONYCHOMYCOSIS
     Route: 048
     Dates: start: 20050406

REACTIONS (2)
  - HAEMATOMA [None]
  - TENDON RUPTURE [None]
